FAERS Safety Report 9181979 (Version 1)
Quarter: 2012Q4

REPORT INFORMATION
  Report Type: 
  Country: US (occurrence: US)
  Receive Date: 20121030
  Receipt Date: 20121030
  Transmission Date: 20130627
  Serious: No
  Sender: FDA-Public Use
  Company Number: US-009507513-1210USA013174

PATIENT

DRUGS (1)
  1. DULERA [Suspect]
     Indication: CHRONIC OBSTRUCTIVE PULMONARY DISEASE
     Dosage: 200 mcg / 5 mcg, UNK
     Route: 055
     Dates: start: 2012

REACTIONS (2)
  - Medication error [Unknown]
  - Product quality issue [Unknown]
